FAERS Safety Report 12778972 (Version 1)
Quarter: 2016Q3

REPORT INFORMATION
  Report Type: Spontaneous
  Country: US (occurrence: US)
  Receive Date: 20160926
  Receipt Date: 20160926
  Transmission Date: 20161109
  Serious: No
  Sender: FDA-Public Use
  Company Number: US-JAZZ-2016-US-011454

PATIENT
  Sex: Male

DRUGS (14)
  1. ADVIL [Concomitant]
     Active Substance: IBUPROFEN
  2. METFORMIN HCL [Concomitant]
     Active Substance: METFORMIN HYDROCHLORIDE
  3. MODAFINIL. [Concomitant]
     Active Substance: MODAFINIL
  4. XYREM [Suspect]
     Active Substance: SODIUM OXYBATE
     Dosage: 2.5 G, SECOND DOSE
     Route: 048
     Dates: start: 201606, end: 201606
  5. ADDERALL XR [Concomitant]
     Active Substance: AMPHETAMINE ASPARTATE\AMPHETAMINE SULFATE\DEXTROAMPHETAMINE SACCHARATE\DEXTROAMPHETAMINE SULFATE
  6. XYREM [Suspect]
     Active Substance: SODIUM OXYBATE
     Indication: NARCOLEPSY
     Dosage: 2.25 G, BID
     Route: 048
     Dates: start: 200402, end: 200403
  7. XYREM [Suspect]
     Active Substance: SODIUM OXYBATE
     Dosage: 2 G, FIRST DOSE
     Route: 048
     Dates: start: 201606, end: 201606
  8. SOLU-CORTEF [Concomitant]
     Active Substance: HYDROCORTISONE SODIUM SUCCINATE
  9. NAPROXEN DR [Concomitant]
  10. LANTUS [Concomitant]
     Active Substance: INSULIN GLARGINE
  11. LARIN 24 FE [Concomitant]
     Active Substance: ETHINYL ESTRADIOL\NORETHINDRONE ACETATE
  12. XYREM [Suspect]
     Active Substance: SODIUM OXYBATE
     Indication: CATAPLEXY
     Dosage: 3 G, BID
     Route: 048
     Dates: start: 200403, end: 2004
  13. TYLENOL EXTRA STRENGTH [Concomitant]
     Active Substance: ACETAMINOPHEN
  14. LORATADINE. [Concomitant]
     Active Substance: LORATADINE

REACTIONS (1)
  - Sinusitis [Unknown]
